FAERS Safety Report 17477523 (Version 1)
Quarter: 2020Q1

REPORT INFORMATION
  Report Type: Spontaneous
  Country: US (occurrence: US)
  Receive Date: 20200228
  Receipt Date: 20200228
  Transmission Date: 20200409
  Serious: No
  Sender: FDA-Public Use
  Company Number: US-SMITH AND NEPHEW, INC-2019SMT00048

PATIENT
  Age: 1 Year
  Sex: Female
  Weight: 10.4 kg

DRUGS (2)
  1. COLLAGENASE SANTYL [Suspect]
     Active Substance: COLLAGENASE CLOSTRIDIUM HISTOLYTICUM
     Indication: THERMAL BURN
     Dosage: UNK UNK, 1X/DAY
     Route: 061
     Dates: start: 20190718
  2. BACITRACIN. [Concomitant]
     Active Substance: BACITRACIN
     Route: 061

REACTIONS (2)
  - Burning sensation [Unknown]
  - Screaming [Unknown]

NARRATIVE: CASE EVENT DATE: 201907
